FAERS Safety Report 21157049 (Version 1)
Quarter: 2022Q3

REPORT INFORMATION
  Report Type: Spontaneous
  Country: US (occurrence: US)
  Receive Date: 20220801
  Receipt Date: 20220801
  Transmission Date: 20221027
  Serious: Yes (Other)
  Sender: FDA-Public Use
  Company Number: US-BAUSCH-BL-2022-018403

PATIENT
  Age: 61 Year
  Sex: Female
  Weight: 36.320 kg

DRUGS (2)
  1. BIOTRUE HYDRATION BOOST [Suspect]
     Active Substance: GLYCERIN
     Indication: Dry eye
     Dosage: PATIENT HAD BEEN USING FOR ABOUT 2 WEEKS, 1 GTT QD
     Route: 065
     Dates: start: 20220608, end: 20220719
  2. BIOTRUE HYDRATION BOOST [Suspect]
     Active Substance: GLYCERIN
     Dosage: TRIED THE PRODUCT AGAIN TODAY (ON THE DATE OF THIS REPORT), 1 GTT QD
     Route: 065
     Dates: start: 20220719, end: 20220719

REACTIONS (2)
  - Instillation site thrombosis [Unknown]
  - Instillation site haemorrhage [Unknown]

NARRATIVE: CASE EVENT DATE: 20220608
